FAERS Safety Report 9278781 (Version 1)
Quarter: 2013Q2

REPORT INFORMATION
  Report Type: Spontaneous
  Country: US (occurrence: US)
  Receive Date: 20130508
  Receipt Date: 20130508
  Transmission Date: 20140414
  Serious: No
  Sender: FDA-Public Use
  Company Number: US-ASTRAZENECA-2012SE96182

PATIENT
  Age: 64 Year
  Sex: Male
  Weight: 77.1 kg

DRUGS (7)
  1. PULMICORT FLEXHALER [Suspect]
     Indication: BRONCHITIS
     Dosage: 180 MCG 1 PUFF, BID
     Route: 055
     Dates: start: 20121107
  2. PULMICORT FLEXHALER [Suspect]
     Indication: PNEUMONIA
     Dosage: 180 MCG 1 PUFF, BID
     Route: 055
     Dates: start: 20121107
  3. VENTOLIN [Concomitant]
     Indication: BRONCHITIS
  4. ATORVASTATIN [Concomitant]
     Indication: BLOOD CHOLESTEROL ABNORMAL
  5. EYE CAPS VITAMIN [Concomitant]
     Indication: MACULAR DEGENERATION
  6. EYE INJECTIONS [Concomitant]
     Indication: MACULAR DEGENERATION
  7. INHALED STEROID [Concomitant]

REACTIONS (2)
  - Bronchitis [Unknown]
  - Off label use [Unknown]
